FAERS Safety Report 7747050-5 (Version None)
Quarter: 2011Q3

REPORT INFORMATION
  Report Type: 
  Country: None (occurrence: None)
  Receive Date: 20110913
  Receipt Date: 20110909
  Transmission Date: 20111222
  Serious: Yes (Other)
  Sender: FDA-Public Use
  Company Number: PHHY2011DE75756

PATIENT
  Sex: Female
  Weight: 56 kg

DRUGS (1)
  1. FEMARA [Suspect]
     Indication: BREAST CANCER
     Dosage: 1 DF (2.5 MG), DAILY
     Route: 048
     Dates: start: 20070901, end: 20110601

REACTIONS (3)
  - ERYTHROPENIA [None]
  - MYELODYSPLASTIC SYNDROME [None]
  - WHITE BLOOD CELL COUNT DECREASED [None]
